FAERS Safety Report 8209328-0 (Version None)
Quarter: 2012Q1

REPORT INFORMATION
  Report Type: 
  Country: None (occurrence: None)
  Receive Date: 20120314
  Receipt Date: 20120305
  Transmission Date: 20120608
  Serious: Yes (Hospitalization)
  Sender: FDA-Public Use
  Company Number: US-BAYER-201027041NA

PATIENT
  Age: 27 Year
  Sex: Female
  Weight: 72.562 kg

DRUGS (4)
  1. SERTRALINE HYDROCHLORIDE [Concomitant]
  2. TYLENOL [Concomitant]
     Indication: PAIN
     Dosage: 325 MG, PRN
     Route: 048
  3. ZOLOFT [Concomitant]
  4. YAZ [Suspect]
     Indication: CONTRACEPTION
     Dosage: UNK
     Route: 048
     Dates: start: 20060801, end: 20060915

REACTIONS (8)
  - GAIT DISTURBANCE [None]
  - OEDEMA PERIPHERAL [None]
  - DEEP VEIN THROMBOSIS [None]
  - PAIN IN EXTREMITY [None]
  - ILIAC VEIN OCCLUSION [None]
  - ANXIETY [None]
  - LIMB DISCOMFORT [None]
  - POST THROMBOTIC SYNDROME [None]
